FAERS Safety Report 19232065 (Version 1)
Quarter: 2021Q2

REPORT INFORMATION
  Report Type: Spontaneous
  Country: US (occurrence: US)
  Receive Date: 20210507
  Receipt Date: 20210507
  Transmission Date: 20210717
  Serious: No
  Sender: FDA-Public Use
  Company Number: US-THE RITEDOSE CORPORATION-2020RIT000218

PATIENT

DRUGS (2)
  1. LEVALBUTEROL. [Suspect]
     Active Substance: LEVALBUTEROL
     Indication: ASTHMA
     Dosage: 1 VIAL, Q4H
     Route: 055
     Dates: start: 20200816
  2. LEVALBUTEROL. [Suspect]
     Active Substance: LEVALBUTEROL
     Indication: CHRONIC OBSTRUCTIVE PULMONARY DISEASE

REACTIONS (7)
  - Pruritus [Unknown]
  - Lip swelling [Unknown]
  - Cough [Recovering/Resolving]
  - Therapeutic product effect decreased [Unknown]
  - Candida infection [Unknown]
  - Swollen tongue [Unknown]
  - Insomnia [Unknown]

NARRATIVE: CASE EVENT DATE: 202008
